FAERS Safety Report 26151114 (Version 1)
Quarter: 2025Q4

REPORT INFORMATION
  Report Type: Spontaneous
  Country: US (occurrence: None)
  Receive Date: 20251211
  Receipt Date: 20251211
  Transmission Date: 20260118
  Serious: Yes (Life-Threatening, Disabling)
  Sender: FDA-CTU
  Company Number: None

PATIENT
  Sex: Female

DRUGS (4)
  1. JANUMET XR [Suspect]
     Active Substance: METFORMIN HYDROCHLORIDE\SITAGLIPTIN PHOSPHATE
     Indication: Diabetes mellitus
  2. ATENOLOL [Concomitant]
     Active Substance: ATENOLOL
  3. Quetispine [Concomitant]
  4. PANTOPRAZOLE [Concomitant]
     Active Substance: PANTOPRAZOLE

REACTIONS (5)
  - Fatigue [None]
  - Gastrointestinal disorder [None]
  - Asthenia [None]
  - Product solubility abnormal [None]
  - Malabsorption [None]

NARRATIVE: CASE EVENT DATE: 20251211
